FAERS Safety Report 9790991 (Version 2)
Quarter: 2014Q1

REPORT INFORMATION
  Report Type: Report from Study
  Country: US (occurrence: US)
  Receive Date: 20131231
  Receipt Date: 20140107
  Transmission Date: 20141002
  Serious: Yes (Hospitalization)
  Sender: FDA-Public Use
  Company Number: US-ABBVIE-13P-163-1183104-00

PATIENT
  Age: 65 Year
  Sex: Female
  Weight: 94.43 kg

DRUGS (3)
  1. HUMIRA [Suspect]
     Indication: PSORIATIC ARTHROPATHY
     Route: 058
     Dates: start: 2011
  2. VERAPAMIL [Concomitant]
     Indication: HYPERTENSION
  3. HCTZ [Concomitant]
     Indication: HYPERTENSION

REACTIONS (13)
  - Rectal haemorrhage [Recovered/Resolved]
  - Diverticulitis [Not Recovered/Not Resolved]
  - Colitis [Not Recovered/Not Resolved]
  - Gastroenteritis [Not Recovered/Not Resolved]
  - Diverticulitis [Not Recovered/Not Resolved]
  - White blood cell count increased [Unknown]
  - Mean cell volume increased [Unknown]
  - Mean cell volume decreased [Unknown]
  - Neutrophil count increased [Unknown]
  - Renal disorder [Not Recovered/Not Resolved]
  - Nephrolithiasis [Unknown]
  - Constipation [Unknown]
  - Diarrhoea [Recovered/Resolved]
